FAERS Safety Report 5442908-4 (Version None)
Quarter: 2007Q3

REPORT INFORMATION
  Report Type: 
  Country: None (occurrence: None)
  Receive Date: 20070830
  Receipt Date: 20070816
  Transmission Date: 20080115
  Serious: Yes (Death)
  Sender: FDA-Public Use
  Company Number: 2007001431

PATIENT
  Age: 78 Year
  Sex: Male

DRUGS (3)
  1. ERLOTINIB / PLACEBO (TABLET) [Suspect]
     Indication: LUNG NEOPLASM MALIGNANT
     Dosage: (QD), ORAL
     Route: 048
     Dates: start: 20060209, end: 20060413
  2. VITAMIN B (VITAMIN B) [Concomitant]
  3. FOLIC ACID [Concomitant]

REACTIONS (3)
  - LUNG NEOPLASM MALIGNANT [None]
  - MALIGNANT NEOPLASM PROGRESSION [None]
  - PERICARDIAL EFFUSION [None]
